FAERS Safety Report 9413619 (Version 4)
Quarter: 2013Q3

REPORT INFORMATION
  Report Type: Spontaneous
  Country: IT (occurrence: IT)
  Receive Date: 20130722
  Receipt Date: 20130902
  Transmission Date: 20140515
  Serious: Yes (Hospitalization)
  Sender: FDA-Public Use
  Company Number: IT-009507513-1307ITA011005

PATIENT
  Age: 13 Year
  Sex: Male
  Weight: 57 kg

DRUGS (1)
  1. MONTEGEN 10MG COMPRESSE RIVESTITE CON FILM [Suspect]
     Dosage: 1 DF, TOTAL
     Route: 048
     Dates: start: 20130603, end: 20130603

REACTIONS (2)
  - Metamorphopsia [Recovered/Resolved]
  - Paraesthesia [Recovered/Resolved]
